FAERS Safety Report 20016263 (Version 1)
Quarter: 2021Q4

REPORT INFORMATION
  Report Type: Spontaneous
  Country: US (occurrence: None)
  Receive Date: 20211103
  Receipt Date: 20211103
  Transmission Date: 20220303
  Serious: Yes (Other)
  Sender: FDA-Public Use
  Company Number: None

PATIENT
  Age: 57 Year
  Sex: Female
  Weight: 72 kg

DRUGS (1)
  1. ATOVAQUONE\PROGUANIL HYDROCHLORIDE [Suspect]
     Active Substance: ATOVAQUONE\PROGUANIL HYDROCHLORIDE
     Indication: Babesiosis
     Dosage: OTHER QUANTITY : 1 TABLET(S);?FREQUENCY : 3 TIMES A DAY;?
     Route: 048
     Dates: start: 20210927, end: 20211007

REACTIONS (9)
  - Psychiatric symptom [None]
  - Agitation [None]
  - Anxiety [None]
  - Panic attack [None]
  - Depression [None]
  - Suicidal ideation [None]
  - Therapy cessation [None]
  - Treatment noncompliance [None]
  - Self-medication [None]

NARRATIVE: CASE EVENT DATE: 20211007
